FAERS Safety Report 4428483-1 (Version None)
Quarter: 2004Q3

REPORT INFORMATION
  Report Type: 
  Country: None (occurrence: None)
  Receive Date: 20040816
  Receipt Date: 20040809
  Transmission Date: 20050211
  Serious: Yes (Hospitalization)
  Sender: FDA-Public Use
  Company Number: KII-2004-0012902

PATIENT
  Age: 63 Year
  Sex: Male

DRUGS (1)
  1. MORPHINE SULFATE [Suspect]
     Indication: CANCER PAIN
     Dosage: ORAL
     Route: 048

REACTIONS (4)
  - ACCIDENTAL OVERDOSE [None]
  - BLOOD PRESSURE DIASTOLIC DECREASED [None]
  - FEELING JITTERY [None]
  - MEDICATION ERROR [None]
